FAERS Safety Report 16195870 (Version 3)
Quarter: 2019Q2

REPORT INFORMATION
  Report Type: Spontaneous
  Country: US (occurrence: US)
  Receive Date: 20190415
  Receipt Date: 20190528
  Transmission Date: 20190711
  Serious: Yes (Other)
  Sender: FDA-Public Use
  Company Number: US-VELOXIS PHARMACEUTICALS, INC.-2019VELUS1450

PATIENT
  Age: 54 Year
  Sex: Male

DRUGS (4)
  1. ENVARSUS XR [Suspect]
     Active Substance: TACROLIMUS
     Indication: RENAL TRANSPLANT
     Dosage: 0.75 MG, QAM
     Route: 048
     Dates: start: 20181214
  2. VORICONAZOLE. [Interacting]
     Active Substance: VORICONAZOLE
     Dosage: UNK
  3. ENVARSUS XR [Suspect]
     Active Substance: TACROLIMUS
     Dosage: 1 MG, QD
     Route: 048
     Dates: start: 20190214
  4. VORICONAZOLE. [Interacting]
     Active Substance: VORICONAZOLE
     Indication: HISTOPLASMOSIS DISSEMINATED
     Dosage: 400 MG, BID
     Route: 048
     Dates: start: 201810

REACTIONS (5)
  - Blood creatinine increased [Recovered/Resolved]
  - Renal tubular necrosis [Recovered/Resolved]
  - Immunosuppressant drug level increased [Recovered/Resolved]
  - Acute kidney injury [Recovered/Resolved]
  - Drug interaction [Recovered/Resolved]

NARRATIVE: CASE EVENT DATE: 20190120
